FAERS Safety Report 7873031-7 (Version None)
Quarter: 2011Q4

REPORT INFORMATION
  Report Type: 
  Country: None (occurrence: None)
  Receive Date: 20111027
  Receipt Date: 20111018
  Transmission Date: 20120403
  Serious: Yes (Other)
  Sender: FDA-Public Use
  Company Number: 2011-4199

PATIENT
  Age: 50 Year
  Sex: Female

DRUGS (1)
  1. LANREOTIDE ACETATE NOS LANREOTIDE) (LANREOTIDE ACETATE) [Suspect]
     Indication: GASTROINTESTINAL FISTULA

REACTIONS (1)
  - INSULINOMA [None]
